FAERS Safety Report 9439584 (Version 2)
Quarter: 2013Q4

REPORT INFORMATION
  Report Type: Spontaneous
  Country: US (occurrence: US)
  Receive Date: 20130805
  Receipt Date: 20131106
  Transmission Date: 20140711
  Serious: No
  Sender: FDA-Public Use
  Company Number: US-009507513-1308USA000105

PATIENT
  Age: 32 Year
  Sex: Female
  Weight: 75.74 kg

DRUGS (1)
  1. NEXPLANON [Suspect]
     Dosage: 1 ROD/3 YEARS
     Route: 059
     Dates: start: 20130730

REACTIONS (2)
  - Device difficult to use [Recovered/Resolved]
  - Device breakage [Recovered/Resolved]
